FAERS Safety Report 24573599 (Version 1)
Quarter: 2024Q4

REPORT INFORMATION
  Report Type: Spontaneous
  Country: SE (occurrence: SE)
  Receive Date: 20241103
  Receipt Date: 20241103
  Transmission Date: 20250115
  Serious: Yes (Disabling)
  Sender: DEXCEL
  Company Number: None

PATIENT
  Age: 46 Year
  Sex: Male
  Weight: 105 kg

DRUGS (1)
  1. IMDUR [Suspect]
     Active Substance: ISOSORBIDE MONONITRATE
     Indication: Angina pectoris
     Dosage: 1 TABLET 1 TIME/DAY
     Route: 048
     Dates: start: 20230726, end: 20240810

REACTIONS (4)
  - Pruritus [Unknown]
  - Depression [Unknown]
  - Alopecia scarring [Unknown]
  - Condition aggravated [Unknown]

NARRATIVE: CASE EVENT DATE: 20240710
